FAERS Safety Report 5225787-X (Version None)
Quarter: 2007Q1

REPORT INFORMATION
  Report Type: 
  Country: None (occurrence: None)
  Receive Date: 20070131
  Receipt Date: 20070131
  Transmission Date: 20070707
  Serious: Yes (Hospitalization)
  Sender: FDA-Public Use
  Company Number: None

PATIENT
  Age: 60 Year
  Sex: Male
  Weight: 77.6 kg

DRUGS (1)
  1. LINEZOLID [Suspect]
     Indication: PNEUMONIA ASPIRATION
     Dosage: 600MG BID PO
     Route: 048

REACTIONS (4)
  - OEDEMA PERIPHERAL [None]
  - REFUSAL OF TREATMENT BY PATIENT [None]
  - THROMBOCYTOPENIA [None]
  - URINARY TRACT INFECTION STAPHYLOCOCCAL [None]
